FAERS Safety Report 8610439-6 (Version None)
Quarter: 2012Q3

REPORT INFORMATION
  Report Type: 
  Country: None (occurrence: None)
  Receive Date: 20120822
  Receipt Date: 20120820
  Transmission Date: 20120928
  Serious: No
  Sender: FDA-Public Use
  Company Number: US-PFIZER INC-2012203802

PATIENT
  Age: 63 Year
  Sex: Female
  Weight: 43.537 kg

DRUGS (3)
  1. ALBUTEROL [Concomitant]
     Dosage: UNK
  2. NICOTROL [Suspect]
     Indication: SMOKING CESSATION THERAPY
     Dosage: UNK
  3. SPIRIVA [Concomitant]
     Dosage: UNK

REACTIONS (3)
  - INCORRECT DOSE ADMINISTERED [None]
  - EXPIRED DRUG ADMINISTERED [None]
  - DRUG INTOLERANCE [None]
